FAERS Safety Report 25493805 (Version 1)
Quarter: 2025Q2

REPORT INFORMATION
  Report Type: Spontaneous
  Country: US (occurrence: None)
  Receive Date: 20250627
  Receipt Date: 20250627
  Transmission Date: 20250717
  Serious: Yes (Disabling)
  Sender: FDA-CTU
  Company Number: None

PATIENT
  Age: 64 Year
  Sex: Female
  Weight: 62.1 kg

DRUGS (6)
  1. AIMOVIG [Suspect]
     Active Substance: ERENUMAB-AOOE
     Indication: Migraine
     Route: 058
     Dates: start: 20250609, end: 20250610
  2. PROPRANOLOL [Suspect]
     Active Substance: PROPRANOLOL HYDROCHLORIDE
  3. intrarosa, [Concomitant]
  4. MELATONIN [Concomitant]
     Active Substance: MELATONIN
  5. tylenol/ibuprofin [Concomitant]
  6. collagen peptides [Concomitant]

REACTIONS (3)
  - Dyspnoea [None]
  - Dizziness [None]
  - Mouth breathing [None]

NARRATIVE: CASE EVENT DATE: 20250611
